FAERS Safety Report 10120799 (Version 2)
Quarter: 2014Q2

REPORT INFORMATION
  Report Type: Report from Study
  Country: FR (occurrence: FR)
  Receive Date: 20140425
  Receipt Date: 20140425
  Transmission Date: 20141212
  Serious: Yes (Death, Hospitalization)
  Sender: FDA-Public Use
  Company Number: FR-BRISTOL-MYERS SQUIBB COMPANY-17201005

PATIENT
  Age: 66 Year
  Sex: Female

DRUGS (20)
  1. DASATINIB [Suspect]
     Indication: PANCREATIC CARCINOMA
     Dosage: 6 DOSES-JUL12-NV12?INTER-29NOV12,4DEC12?6TH DOSE,DAY 1-27NV12
     Route: 048
     Dates: start: 20120710
  2. GEMCITABINE [Suspect]
     Indication: PANCREATIC CARCINOMA
     Dosage: 17-NOV-2012;CYCLE 6 :DAY 1,02OCT12-12NOV12,DOSE INCREASED TO1640MG FRM 13NOV12-27NOV12
     Dates: start: 20121002, end: 20121204
  3. EPOETIN BETA [Suspect]
     Indication: ANAEMIA PROPHYLAXIS
     Dosage: 12SEP12-16SEP12
     Route: 030
     Dates: start: 20120912
  4. TAREG [Concomitant]
     Dosage: 2004
     Dates: start: 1990
  5. SEROPLEX [Concomitant]
     Dosage: APR12
     Dates: start: 20110519
  6. SYMBICORT [Concomitant]
     Dosage: 17NOV12
     Dates: start: 201203
  7. SPIRIVA [Concomitant]
     Dosage: MAR12
     Dates: start: 20110519
  8. INEXIUM [Concomitant]
     Dosage: JUN12
     Dates: start: 201203
  9. ALDACTONE [Concomitant]
     Dates: start: 201211
  10. TAHOR [Concomitant]
     Dosage: 30JAN04
     Dates: start: 1990
  11. DOLIPRANE [Concomitant]
     Dates: start: 2012
  12. XYZALL [Concomitant]
     Dates: start: 2000, end: 2000
  13. BRONCHODUAL [Concomitant]
     Dosage: 2005-16NOV12,17NOV12
     Dates: start: 2005
  14. LEXOMIL [Concomitant]
     Dates: start: 20120322
  15. ACUPAN [Concomitant]
     Dosage: JUN12-17NOV12
     Dates: start: 2006, end: 2012
  16. SPASFON [Concomitant]
     Dates: start: 20120327
  17. FORTIMEL [Concomitant]
     Dates: start: 201211
  18. BRICANYL [Concomitant]
     Dates: start: 2012
  19. PRIMPERAN [Concomitant]
     Dates: start: 20121016, end: 20121111
  20. SMECTA [Concomitant]
     Dates: start: 20121207

REACTIONS (4)
  - Cardiac failure [Fatal]
  - Pleural effusion [Fatal]
  - Dyspnoea [Recovered/Resolved]
  - Melaena [Not Recovered/Not Resolved]
